FAERS Safety Report 12351656 (Version 1)
Quarter: 2016Q2

REPORT INFORMATION
  Report Type: Report from Study
  Country: US (occurrence: US)
  Receive Date: 20160510
  Receipt Date: 20160510
  Transmission Date: 20160815
  Serious: No
  Sender: FDA-Public Use
  Company Number: US-THERATECHNOLOGIES, INC.-TH-2016-00051

PATIENT
  Age: 49 Year
  Sex: Female
  Weight: 67.19 kg

DRUGS (1)
  1. EGRIFTA [Suspect]
     Active Substance: TESAMORELIN
     Indication: LIPOHYPERTROPHY
     Dosage: 2 MILLIGRAM
     Route: 058
     Dates: start: 20160417, end: 20160430

REACTIONS (2)
  - Nausea [Not Recovered/Not Resolved]
  - Arthralgia [Not Recovered/Not Resolved]

NARRATIVE: CASE EVENT DATE: 20160501
